FAERS Safety Report 7105835-2 (Version None)
Quarter: 2010Q4

REPORT INFORMATION
  Report Type: 
  Country: None (occurrence: None)
  Receive Date: 20101116
  Receipt Date: 20101109
  Transmission Date: 20110411
  Serious: Yes (Congenital Anomaly)
  Sender: FDA-Public Use
  Company Number: A0680937A

PATIENT
  Sex: Male

DRUGS (7)
  1. PAXIL [Suspect]
     Indication: ANXIETY
     Dosage: 20MG PER DAY
     Dates: start: 19971001, end: 20070101
  2. PAXIL CR [Suspect]
     Indication: ANXIETY
     Dates: start: 19971001, end: 20070101
  3. PAROXETINE HCL [Suspect]
     Indication: ANXIETY
     Dates: start: 19971001, end: 20070101
  4. PRENATAL VITAMINS [Concomitant]
     Dates: start: 20010101, end: 20060101
  5. HEPARIN [Concomitant]
  6. ATIVAN [Concomitant]
  7. IRON SULFATETHIAMIN COMPOUND TAB [Concomitant]

REACTIONS (4)
  - ATRIAL SEPTAL DEFECT [None]
  - DRUG EXPOSURE DURING PREGNANCY [None]
  - HEART DISEASE CONGENITAL [None]
  - VENTRICULAR SEPTAL DEFECT [None]
